FAERS Safety Report 7726061-X (Version None)
Quarter: 2011Q3

REPORT INFORMATION
  Report Type: 
  Country: None (occurrence: None)
  Receive Date: 20110902
  Receipt Date: 20110829
  Transmission Date: 20111222
  Serious: Yes (Death)
  Sender: FDA-Public Use
  Company Number: US-ROCHE-800002

PATIENT
  Sex: Female
  Weight: 52.7 kg

DRUGS (26)
  1. OXYCODONE HCL [Concomitant]
  2. COMPAZINE [Concomitant]
  3. MYFORTIC [Concomitant]
  4. LOMOTIL [Concomitant]
  5. MEGACE [Concomitant]
  6. PREDNISONE [Concomitant]
  7. CLONIDINE [Concomitant]
  8. CELEXA [Concomitant]
  9. COLACE [Concomitant]
  10. PEGASYS [Suspect]
     Indication: HEPATITIS C
     Route: 058
  11. MAGNESIUM OXIDE [Concomitant]
  12. AMBIEN [Concomitant]
  13. RAPAMUNE [Concomitant]
  14. FLONASE [Concomitant]
  15. LIPITOR [Concomitant]
  16. KEPPRA [Concomitant]
  17. VISTARIL [Concomitant]
  18. LOPRESSOR [Concomitant]
  19. DULCOLAX [Concomitant]
  20. PROCRIT [Concomitant]
  21. POTASSIUM CHLORIDE [Concomitant]
  22. LASIX [Concomitant]
  23. MAGIC MOUTHWASH (ALUMINIUM HYDROXIDE/DIPHENHYDRAMINE HYDROCHLORIDE/LI+ [Concomitant]
  24. NORVASC [Concomitant]
  25. PRILOSEC [Concomitant]
  26. ALLEGRA [Concomitant]

REACTIONS (1)
  - DEATH [None]
